FAERS Safety Report 6385132-3 (Version None)
Quarter: 2009Q4

REPORT INFORMATION
  Report Type: 
  Country: None (occurrence: None)
  Receive Date: 20091002
  Receipt Date: 20090929
  Transmission Date: 20100525
  Serious: Yes (Death)
  Sender: FDA-Public Use
  Company Number: JP-BAYER-200913557BYL

PATIENT
  Age: 82 Year
  Sex: Male

DRUGS (3)
  1. NEXAVAR [Suspect]
     Indication: HEPATIC NEOPLASM MALIGNANT
     Dosage: TOTAL DAILY DOSE: 800 MG  UNIT DOSE: 200 MG
     Route: 048
     Dates: start: 20090810, end: 20090917
  2. ADRENAL HORMONE PREPARATIONS [Concomitant]
     Indication: GLOSSITIS
     Route: 065
     Dates: start: 20090907
  3. ITRIZOLE [Concomitant]
     Indication: FUNGAL INFECTION
     Route: 065
     Dates: start: 20090917

REACTIONS (3)
  - ABDOMINAL PAIN [None]
  - C-REACTIVE PROTEIN INCREASED [None]
  - INTERSTITIAL LUNG DISEASE [None]
